FAERS Safety Report 24083375 (Version 1)
Quarter: 2024Q3

REPORT INFORMATION
  Report Type: Report from Study
  Country: IT (occurrence: IT)
  Receive Date: 20240712
  Receipt Date: 20240712
  Transmission Date: 20241017
  Serious: Yes (Hospitalization, Other)
  Sender: SERVIER
  Company Number: None

PATIENT

DRUGS (3)
  1. PEGASPARGASE [Suspect]
     Active Substance: PEGASPARGASE
     Indication: B-cell type acute leukaemia
     Dosage: 2100 IU, 120 MIN INFUSION
     Route: 042
     Dates: start: 20240601, end: 20240601
  2. ETOPOSIDE [Suspect]
     Active Substance: ETOPOSIDE
     Indication: B-cell type acute leukaemia
     Dosage: 84.00 MG EVERY 12 HOURS INFUSION OVER 60 MIN. (TOTAL 5 SUMS)
     Route: 042
     Dates: start: 20240529, end: 20240531
  3. CYTARABINE [Suspect]
     Active Substance: CYTARABINE
     Indication: B-cell type acute leukaemia
     Dosage: 1680.00 MG EVERY 12 HOURS INFUSION OVER 180 MIN. (TOTAL 5 SUMMATIONS)
     Route: 042
     Dates: start: 20240527, end: 20240529

REACTIONS (3)
  - Leukopenia [Recovered/Resolved]
  - Thrombocytopenia [Recovered/Resolved]
  - Febrile neutropenia [Recovered/Resolved]

NARRATIVE: CASE EVENT DATE: 20240606
